FAERS Safety Report 5627649-2 (Version None)
Quarter: 2008Q1

REPORT INFORMATION
  Report Type: 
  Country: None (occurrence: None)
  Receive Date: 20080214
  Receipt Date: 20080214
  Transmission Date: 20080703
  Serious: Yes (Hospitalization)
  Sender: FDA-Public Use
  Company Number: None

PATIENT
  Age: 61 Year
  Sex: Female
  Weight: 70.7 kg

DRUGS (2)
  1. TAMIFLU [Suspect]
     Indication: INFLUENZA
     Dosage: 1      DAILY  PO
     Route: 048
     Dates: start: 20080107, end: 20080108
  2. TAMIFLU [Suspect]
     Indication: PROPHYLAXIS
     Dosage: 1      DAILY  PO
     Route: 048
     Dates: start: 20080107, end: 20080108

REACTIONS (2)
  - DYSPHAGIA [None]
  - EPIGLOTTITIS [None]
